FAERS Safety Report 24234972 (Version 3)
Quarter: 2024Q3

REPORT INFORMATION
  Report Type: Spontaneous
  Country: US (occurrence: US)
  Receive Date: 20240821
  Receipt Date: 20240930
  Transmission Date: 20241017
  Serious: Yes (Hospitalization, Other)
  Sender: PAREXEL
  Company Number: US-BELCHER PHARMACEUTICALS, LLC-2024US002632

PATIENT

DRUGS (2)
  1. SEMAGLUTIDE [Suspect]
     Active Substance: SEMAGLUTIDE
     Indication: Weight control
     Dosage: 5 MG/2 ML (2.5 MG/ML)
     Route: 058
  2. PRISTIQ EXTENDED-RELEASE [Concomitant]
     Active Substance: DESVENLAFAXINE SUCCINATE
     Indication: Product used for unknown indication
     Dosage: UNK

REACTIONS (4)
  - Retinal tear [Unknown]
  - Vitreous floaters [Unknown]
  - Hyperhidrosis [Unknown]
  - Off label use [Unknown]

NARRATIVE: CASE EVENT DATE: 20240101
